FAERS Safety Report 8768188 (Version 2)
Quarter: 2012Q4

REPORT INFORMATION
  Report Type: 
  Country: US (occurrence: US)
  Receive Date: 20120904
  Receipt Date: 20121204
  Transmission Date: 20130627
  Serious: No
  Sender: FDA-Public Use
  Company Number: US-AMGEN-USASP2012053836

PATIENT
  Age: 39 Year
  Sex: Female

DRUGS (4)
  1. ENBREL [Suspect]
     Indication: PSORIASIS
     Dosage: 50 mg, 2 times/wk
     Route: 058
     Dates: start: 20120724, end: 20120820
  2. TERBINAFINE [Concomitant]
     Indication: ONYCHOMYCOSIS
     Dosage: 250 UNK, qd
     Route: 048
     Dates: start: 20120717
  3. SIMVASTIN [Concomitant]
     Indication: HYPERCHOLESTEROLAEMIA
     Dosage: UNK
     Route: 048
  4. DEXILANT [Concomitant]
     Dosage: UNK
     Route: 048

REACTIONS (3)
  - Injection site urticaria [Not Recovered/Not Resolved]
  - Injection site erythema [Recovered/Resolved]
  - Injection site irritation [Not Recovered/Not Resolved]
